FAERS Safety Report 19011305 (Version 2)
Quarter: 2021Q1

REPORT INFORMATION
  Report Type: Spontaneous
  Country: AU (occurrence: AU)
  Receive Date: 20210316
  Receipt Date: 20210324
  Transmission Date: 20210420
  Serious: Yes (Hospitalization)
  Sender: FDA-Public Use
  Company Number: AU-BEH-2021129429

PATIENT
  Age: 34 Year
  Sex: Female
  Weight: 52 kg

DRUGS (4)
  1. HIZENTRA [Suspect]
     Active Substance: HUMAN IMMUNOGLOBULIN G
     Dosage: 5 GRAM (25 ML), TOT
     Route: 058
     Dates: start: 20210311, end: 20210311
  2. HIZENTRA [Suspect]
     Active Substance: HUMAN IMMUNOGLOBULIN G
     Dosage: UNK
     Route: 058
     Dates: start: 20210311, end: 20210311
  3. HIZENTRA [Suspect]
     Active Substance: HUMAN IMMUNOGLOBULIN G
     Indication: CHRONIC LYMPHOCYTIC LEUKAEMIA
     Dosage: 1 GRAM (5ML)
     Route: 058
     Dates: start: 20200110, end: 20200124
  4. HIZENTRA [Suspect]
     Active Substance: HUMAN IMMUNOGLOBULIN G
     Indication: HYPOGAMMAGLOBULINAEMIA
     Dosage: 4 GRAM (20ML)
     Route: 058
     Dates: start: 20200110, end: 20200124

REACTIONS (11)
  - Infusion site pain [Unknown]
  - Vomiting [Unknown]
  - Insomnia [Unknown]
  - Infusion site erythema [Unknown]
  - Infusion site swelling [Unknown]
  - Infusion site pain [Recovered/Resolved]
  - Infusion site induration [Recovered/Resolved]
  - Body temperature increased [Unknown]
  - Injection site mass [Recovered/Resolved]
  - Infusion site warmth [Unknown]
  - Nausea [Unknown]

NARRATIVE: CASE EVENT DATE: 202103
